FAERS Safety Report 24874792 (Version 2)
Quarter: 2025Q2

REPORT INFORMATION
  Report Type: Spontaneous
  Country: US (occurrence: US)
  Receive Date: 20250122
  Receipt Date: 20250522
  Transmission Date: 20250717
  Serious: No
  Sender: SANOFI AVENTIS
  Company Number: US-SA-2025SA018731

PATIENT
  Age: 60 Year
  Sex: Female

DRUGS (5)
  1. DUPIXENT [Suspect]
     Active Substance: DUPILUMAB
     Indication: Chronic obstructive pulmonary disease
     Dosage: 200MG, QOW
     Route: 058
  2. DUPIXENT [Suspect]
     Active Substance: DUPILUMAB
     Indication: Asthma
  3. METOPROLOL SUCCINATE [Suspect]
     Active Substance: METOPROLOL SUCCINATE
  4. TYLENOL [Concomitant]
     Active Substance: ACETAMINOPHEN
     Indication: Arthritis
  5. OXYGEN [Concomitant]
     Active Substance: OXYGEN

REACTIONS (6)
  - Dyspnoea [Unknown]
  - Drug ineffective [Unknown]
  - Productive cough [Unknown]
  - Loss of personal independence in daily activities [Unknown]
  - Therapeutic response unexpected [Unknown]
  - Incorrect dose administered [Unknown]
